FAERS Safety Report 8233665 (Version 5)
Quarter: 2012Q4

REPORT INFORMATION
  Report Type: Report from Study
  Country: FR (occurrence: FR)
  Receive Date: 20111107
  Receipt Date: 20120924
  Transmission Date: 20130627
  Serious: Yes (Hospitalization, Other)
  Sender: FDA-Public Use
  Company Number: FR-ROCHE-1009344

PATIENT
  Age: 75 Year
  Sex: Male
  Weight: 70 kg

DRUGS (9)
  1. RANIBIZUMAB [Suspect]
     Indication: DIABETIC RETINAL OEDEMA
     Dosage: Dose: 10 mg/ml, date of last dose prior to event 05/sep/2011
     Route: 050
     Dates: start: 20110804, end: 20110804
  2. RANIBIZUMAB [Suspect]
     Route: 065
     Dates: start: 20110905, end: 20111013
  3. TEMERIT [Concomitant]
  4. RAMIPRIL [Concomitant]
  5. JANUVIA [Concomitant]
  6. NOVONORM [Concomitant]
  7. AMLOR [Concomitant]
  8. EUPANTOL [Concomitant]
  9. CRESTOR [Concomitant]

REACTIONS (2)
  - Myocardial infarction [Recovered/Resolved]
  - Diabetes mellitus [Unknown]
